FAERS Safety Report 8437139-X (Version None)
Quarter: 2012Q2

REPORT INFORMATION
  Report Type: 
  Country: None (occurrence: None)
  Receive Date: 20120614
  Receipt Date: 20120406
  Transmission Date: 20120825
  Serious: No
  Sender: FDA-Public Use
  Company Number: US-AMGEN-USASP2012021990

PATIENT
  Age: 68 Year
  Sex: Female

DRUGS (3)
  1. PROLIA [Suspect]
     Indication: OSTEOPOROSIS POSTMENOPAUSAL
     Dosage: UNK UNK, Q6MO
     Dates: start: 20110101
  2. VITAMIN D [Concomitant]
     Dosage: UNK
  3. CALCIUM [Concomitant]
     Dosage: UNK

REACTIONS (5)
  - ABDOMINAL PAIN UPPER [None]
  - CYSTITIS [None]
  - BONE PAIN [None]
  - ARTHRALGIA [None]
  - OEDEMA PERIPHERAL [None]
